FAERS Safety Report 5133151-7 (Version None)
Quarter: 2006Q4

REPORT INFORMATION
  Report Type: 
  Country: None (occurrence: None)
  Receive Date: 20061018
  Receipt Date: 20061009
  Transmission Date: 20070319
  Serious: Yes (Other)
  Sender: FDA-Public Use
  Company Number: GXKR2006NL06384

PATIENT
  Age: 27 Year
  Sex: Female
  Weight: 60 kg

DRUGS (1)
  1. AMOXICILLIN+CLAVULANATE (NGX) (AMOXICILLIN, CLAVULANATE) DISPERSIBLE T [Suspect]
     Indication: INFECTION
     Dosage: 1 DF, TID, ORAL
     Route: 048
     Dates: start: 20060925

REACTIONS (4)
  - DIARRHOEA [None]
  - DYSURIA [None]
  - STOMATITIS [None]
  - VAGINAL BURNING SENSATION [None]
